FAERS Safety Report 17555834 (Version 1)
Quarter: 2020Q1

REPORT INFORMATION
  Report Type: Spontaneous
  Country: DE (occurrence: DE)
  Receive Date: 20200318
  Receipt Date: 20200318
  Transmission Date: 20200409
  Serious: Yes (Other)
  Sender: FDA-Public Use
  Company Number: DE-PFIZER INC-2020097614

PATIENT
  Age: 36 Year
  Sex: Female

DRUGS (2)
  1. SOBELIN [Suspect]
     Active Substance: CLINDAMYCIN HYDROCHLORIDE
     Indication: PERIODONTAL INFLAMMATION
     Dosage: 2 DF, DAILY
  2. SOBELIN [Suspect]
     Active Substance: CLINDAMYCIN HYDROCHLORIDE
     Dosage: 2 DF, DAILY

REACTIONS (7)
  - Arrhythmia [Unknown]
  - Alveolar osteitis [Unknown]
  - Pain [Unknown]
  - Nausea [Unknown]
  - Headache [Unknown]
  - Drug ineffective [Unknown]
  - Dizziness [Unknown]
